FAERS Safety Report 6599088-1 (Version None)
Quarter: 2010Q1

REPORT INFORMATION
  Report Type: 
  Country: None (occurrence: None)
  Receive Date: 20100224
  Receipt Date: 20090904
  Transmission Date: 20100710
  Serious: No
  Sender: FDA-Public Use
  Company Number: US-BRISTOL-MYERS SQUIBB COMPANY-14768097

PATIENT
  Age: 66 Year
  Sex: Female

DRUGS (3)
  1. GLUCOPHAGE [Suspect]
  2. AMARYL [Suspect]
  3. JANUVIA [Suspect]

REACTIONS (2)
  - BLOOD GLUCOSE DECREASED [None]
  - MALAISE [None]
